FAERS Safety Report 8009953-6 (Version None)
Quarter: 2011Q4

REPORT INFORMATION
  Report Type: 
  Country: None (occurrence: None)
  Receive Date: 20111221
  Receipt Date: 20111212
  Transmission Date: 20120403
  Serious: Yes (Other)
  Sender: FDA-Public Use
  Company Number: CL-361-2011

PATIENT
  Age: 54 Year
  Sex: Male

DRUGS (5)
  1. AMLODIPINE BESYLATE [Concomitant]
  2. ISOSORBIDE MONONITRATE [Concomitant]
  3. PERINDOPRIL [Concomitant]
  4. ROSUVASTATIN [Concomitant]
  5. AMIODARONE HCL [Suspect]
     Indication: ATRIAL FIBRILLATION
     Dosage: 200 MG, D, ORAL ROUTE
     Route: 048

REACTIONS (2)
  - HYPERTHYROIDISM [None]
  - GOITRE [None]
